FAERS Safety Report 12288977 (Version 1)
Quarter: 2016Q2

REPORT INFORMATION
  Report Type: Spontaneous
  Country: US (occurrence: US)
  Receive Date: 20160421
  Receipt Date: 20160421
  Transmission Date: 20160815
  Serious: No
  Sender: FDA-Public Use
  Company Number: US-009507513-1604USA013467

PATIENT
  Sex: Female

DRUGS (1)
  1. ZONTIVITY [Suspect]
     Active Substance: VORAPAXAR SULFATE
     Dosage: 2.08 MG/ ONCE A DAY
     Route: 048

REACTIONS (1)
  - Subdural haemorrhage [Unknown]

NARRATIVE: CASE EVENT DATE: 201507
